FAERS Safety Report 9242265 (Version 1)
Quarter: 2013Q2

REPORT INFORMATION
  Report Type: Spontaneous
  Country: US (occurrence: US)
  Receive Date: 20130419
  Receipt Date: 20130419
  Transmission Date: 20140414
  Serious: No
  Sender: FDA-Public Use
  Company Number: US-B.I. PHARMACEUTICALS,INC./RIDGEFIELD-2013-BI-09773BP

PATIENT
  Age: 55 Year
  Sex: Female
  Weight: 91 kg

DRUGS (11)
  1. LANTUS [Concomitant]
     Indication: DIABETES MELLITUS
     Dosage: 20 U
     Route: 058
  2. DITROPAN [Concomitant]
     Indication: INCONTINENCE
     Route: 048
  3. SEROQUEL [Concomitant]
     Indication: SLEEP DISORDER
     Dosage: 300 MG
     Route: 048
  4. CELEXA [Concomitant]
     Indication: MOOD SWINGS
     Dosage: 40 MG
     Route: 048
  5. DOCUSATE SODIUM [Concomitant]
     Indication: CONSTIPATION
     Route: 048
  6. HYDROCODONE [Concomitant]
     Indication: PAIN
     Route: 048
  7. FOSAMAX [Concomitant]
     Route: 055
  8. SPIRIVA [Suspect]
     Indication: CHRONIC OBSTRUCTIVE PULMONARY DISEASE
     Dosage: 18 MCG
     Route: 055
     Dates: start: 20130402
  9. XOPENEX [Concomitant]
     Route: 055
  10. METFORMIN [Concomitant]
     Indication: DIABETES MELLITUS
     Dosage: 2000 MG
     Route: 048
  11. LYRICA [Concomitant]
     Indication: DIABETIC NEUROPATHY
     Route: 048

REACTIONS (3)
  - Myalgia [Not Recovered/Not Resolved]
  - Diarrhoea [Recovered/Resolved]
  - Abdominal pain upper [Recovered/Resolved]
